FAERS Safety Report 5821098-X (Version None)
Quarter: 2008Q3

REPORT INFORMATION
  Report Type: 
  Country: None (occurrence: None)
  Receive Date: 20080724
  Receipt Date: 20080717
  Transmission Date: 20090109
  Serious: Yes (Hospitalization)
  Sender: FDA-Public Use
  Company Number: IL-WATSON-2008-04332

PATIENT
  Age: 90 Year
  Sex: Female

DRUGS (2)
  1. METRONIDAZOLE [Suspect]
     Indication: PNEUMONIA ASPIRATION
     Dosage: 500 MG, TID
     Route: 065
     Dates: start: 20071005, end: 20071006
  2. CEFTRIAXONE [Concomitant]
     Indication: PNEUMONIA ASPIRATION
     Dosage: 1 G, DAILY
     Route: 042
     Dates: start: 20071005, end: 20071006

REACTIONS (1)
  - ELECTROCARDIOGRAM QT PROLONGED [None]
